FAERS Safety Report 9955398 (Version 2)
Quarter: 2014Q1

REPORT INFORMATION
  Report Type: Spontaneous
  Country: US (occurrence: US)
  Receive Date: 20140304
  Receipt Date: 20140304
  Transmission Date: 20141002
  Serious: No
  Sender: FDA-Public Use
  Company Number: US-ABBVIE-13P-163-1059828-00

PATIENT
  Age: 22 Year
  Sex: Female
  Weight: 63.56 kg

DRUGS (13)
  1. HUMIRA [Suspect]
     Indication: CROHN^S DISEASE
     Route: 058
     Dates: start: 20130219, end: 20130219
  2. HUMIRA [Suspect]
     Route: 058
     Dates: start: 20130305, end: 20130305
  3. HUMIRA [Suspect]
  4. PREDNISONE [Concomitant]
     Indication: CROHN^S DISEASE
     Dosage: WEANED TO 5MG DAILY
  5. PREDNISONE [Concomitant]
     Indication: ENTERITIS
  6. TYLENOL [Concomitant]
     Indication: PRODUCT USED FOR UNKNOWN INDICATION
  7. TRAMADOL [Concomitant]
     Indication: PRODUCT USED FOR UNKNOWN INDICATION
  8. UNKNOWN SLEEPING MEDICINE [Concomitant]
     Indication: SLEEP DISORDER
  9. PROBIOTICS NOS [Concomitant]
     Indication: PRODUCT USED FOR UNKNOWN INDICATION
     Dosage: DAILY
  10. ADVAIR [Concomitant]
     Indication: ASTHMA
  11. IRON PILL [Concomitant]
     Indication: PRODUCT USED FOR UNKNOWN INDICATION
  12. BIOTIN [Concomitant]
     Indication: PRODUCT USED FOR UNKNOWN INDICATION
  13. MULTIVITAMIN [Concomitant]
     Indication: PRODUCT USED FOR UNKNOWN INDICATION

REACTIONS (7)
  - Drug ineffective [Not Recovered/Not Resolved]
  - Gastric dilatation [Not Recovered/Not Resolved]
  - Injection site pain [Not Recovered/Not Resolved]
  - Acne [Not Recovered/Not Resolved]
  - Pruritus [Not Recovered/Not Resolved]
  - Injection site bruising [Unknown]
  - Abdominal pain [Recovered/Resolved]
